FAERS Safety Report 8556410-4 (Version None)
Quarter: 2012Q3

REPORT INFORMATION
  Report Type: 
  Country: None (occurrence: None)
  Receive Date: 20120801
  Receipt Date: 20120727
  Transmission Date: 20120928
  Serious: Yes (Other)
  Sender: FDA-Public Use
  Company Number: PHFR2012GB003161

PATIENT
  Sex: Female

DRUGS (6)
  1. CLOZARIL [Suspect]
     Indication: SCHIZOPHRENIA
     Dosage: (250 MG) 50 MG AT MORNING AND 200 MG AT NIGHT, DAILY
     Route: 048
     Dates: start: 20120313, end: 20120530
  2. LAMOTRIGINE [Concomitant]
     Indication: EPILEPSY
     Dosage: 100 MG AT MORNING AND 50 MG AT NIGHT
     Route: 048
  3. LEVETIRACETAM [Concomitant]
     Indication: EPILEPSY
     Dosage: 75 MG, TID
     Route: 048
  4. VALPROIC ACID [Concomitant]
     Dosage: 500 MG, BID
     Route: 048
  5. PENETOROL [Concomitant]
     Dosage: 300 MG, DAILY AT NIGNT
     Route: 048
  6. PHENYTOIN [Concomitant]

REACTIONS (6)
  - URINARY TRACT INFECTION [None]
  - NEUTROPENIA [None]
  - WHITE BLOOD CELL COUNT DECREASED [None]
  - DIFFERENTIAL WHITE BLOOD CELL COUNT ABNORMAL [None]
  - NEUTROPHIL COUNT DECREASED [None]
  - EAR INFECTION [None]
